FAERS Safety Report 15893112 (Version 1)
Quarter: 2019Q1

REPORT INFORMATION
  Report Type: Report from Study
  Country: US (occurrence: US)
  Receive Date: 20190130
  Receipt Date: 20190130
  Transmission Date: 20190417
  Serious: No
  Sender: FDA-Public Use
  Company Number: US-EXELIXIS-CABO-18015696

PATIENT
  Age: 73 Year
  Sex: Female

DRUGS (1)
  1. CABOMETYX [Suspect]
     Active Substance: CABOZANTINIB S-MALATE
     Indication: SOFT TISSUE SARCOMA
     Dosage: 60 MG, QD (AT 1300 ON EMPTY STOMACH)
     Dates: start: 20180815

REACTIONS (8)
  - Fatigue [Unknown]
  - Constipation [Unknown]
  - Dysgeusia [Unknown]
  - Blister [Unknown]
  - Erythema [Unknown]
  - Oral pain [Unknown]
  - Off label use [Unknown]
  - Pruritus [Unknown]

NARRATIVE: CASE EVENT DATE: 201808
